FAERS Safety Report 10050781 (Version 1)
Quarter: 2014Q2

REPORT INFORMATION
  Report Type: Spontaneous
  Country: US (occurrence: US)
  Receive Date: 20140401
  Receipt Date: 20140401
  Transmission Date: 20141212
  Serious: No
  Sender: FDA-Public Use
  Company Number: US-ASTRAZENECA-2013SE69835

PATIENT
  Age: 60 Year
  Sex: Female
  Weight: 102.1 kg

DRUGS (7)
  1. NEXIUM [Suspect]
     Indication: GASTROOESOPHAGEAL REFLUX DISEASE
     Route: 048
     Dates: start: 201306, end: 201307
  2. NEXIUM [Suspect]
     Indication: GASTROOESOPHAGEAL REFLUX DISEASE
     Route: 048
     Dates: start: 201308, end: 201309
  3. OMEPRAZOLE [Suspect]
     Indication: GASTROOESOPHAGEAL REFLUX DISEASE
     Route: 048
     Dates: start: 2003, end: 201306
  4. OMEPRAZOLE [Suspect]
     Indication: GASTROOESOPHAGEAL REFLUX DISEASE
     Route: 048
     Dates: start: 201307, end: 201308
  5. OMEPRAZOLE [Suspect]
     Indication: GASTROOESOPHAGEAL REFLUX DISEASE
     Route: 048
     Dates: start: 201309
  6. MOBIC [Concomitant]
     Indication: ARTHRITIS
     Route: 048
     Dates: start: 2003
  7. FLEXARIL [Concomitant]
     Indication: MUSCLE SPASMS
     Route: 048
     Dates: start: 2007

REACTIONS (6)
  - Pain [Unknown]
  - Epigastric discomfort [Unknown]
  - Hyperchlorhydria [Unknown]
  - Blood pressure decreased [Unknown]
  - Discomfort [Unknown]
  - Intentional product misuse [Unknown]
